FAERS Safety Report 8800954 (Version 1)
Quarter: 2012Q4

REPORT INFORMATION
  Report Type: Report from Study
  Country: US (occurrence: US)
  Receive Date: 20120921
  Receipt Date: 20120921
  Transmission Date: 20130627
  Serious: Yes (Other)
  Sender: FDA-Public Use
  Company Number: US-ASTELLAS-2012US008004

PATIENT

DRUGS (3)
  1. ERLOTINIB TABLET [Suspect]
     Indication: MALIGNANT GLIOMA
     Dosage: 450 mg, UID/QD
     Route: 048
  2. DASATINIB [Suspect]
     Indication: MALIGNANT GLIOMA
     Dosage: 210 mg, UID/QD
     Route: 048
  3. RANITIDINE [Concomitant]
     Indication: PRODUCT USED FOR UNKNOWN INDICATION
     Dosage: 150 mg, UID/QD 4 hrs after dasatinib.
     Route: 065

REACTIONS (2)
  - Off label use [Unknown]
  - Thrombocytopenia [Unknown]
